FAERS Safety Report 4819454-1 (Version None)
Quarter: 2005Q4

REPORT INFORMATION
  Report Type: 
  Country: None (occurrence: None)
  Receive Date: 20051031
  Receipt Date: 20050718
  Transmission Date: 20060501
  Serious: No
  Sender: FDA-Public Use
  Company Number: 2005PV000458

PATIENT
  Age: 63 Year
  Sex: Female
  Weight: 108.8633 kg

DRUGS (11)
  1. SYMLIN [Suspect]
     Indication: DIABETES MELLITUS NON-INSULIN-DEPENDENT
     Dosage: 90 MCG QD
     Dates: start: 20050101
  2. SYMLIN [Suspect]
     Dosage: 60 MCG
     Dates: start: 20050101
  3. SYMLIN [Suspect]
     Dosage: 45 MCG
     Dates: start: 20050101
  4. SYMLIN [Suspect]
     Dosage: 30 MCG
     Dates: start: 20050101
  5. SYMLIN [Suspect]
     Dosage: 60 MCG QD
     Dates: start: 20050101
  6. AMARYL [Concomitant]
  7. LANTUS [Concomitant]
  8. REGULAR INSULIN [Concomitant]
  9. PRILOSEC [Concomitant]
  10. MAALOX STOOL SOFTENER [Concomitant]
  11. PREPARATION H [Concomitant]

REACTIONS (5)
  - CONSTIPATION [None]
  - INJECTION SITE BRUISING [None]
  - INJECTION SITE PAIN [None]
  - NAUSEA [None]
  - VOMITING [None]
